FAERS Safety Report 7510360-0 (Version None)
Quarter: 2011Q2

REPORT INFORMATION
  Report Type: 
  Country: None (occurrence: None)
  Receive Date: 20110527
  Receipt Date: 20110517
  Transmission Date: 20111010
  Serious: Yes (Other)
  Sender: FDA-Public Use
  Company Number: US-AMGEN-USASP2011012225

PATIENT
  Age: 74 Year
  Sex: Female

DRUGS (3)
  1. ENBREL [Suspect]
     Indication: PSORIATIC ARTHROPATHY
     Dosage: 50 MG, WEEKLY
     Route: 058
     Dates: start: 20040101
  2. LEFLUNOMIDE [Concomitant]
     Dosage: 20 MG, 1X/DAY
     Dates: start: 20040101
  3. ENBREL [Suspect]
     Indication: PSORIASIS
     Dosage: UNK

REACTIONS (2)
  - SQUAMOUS CELL CARCINOMA [None]
  - BASAL CELL CARCINOMA [None]
